FAERS Safety Report 4789496-3 (Version None)
Quarter: 2005Q4

REPORT INFORMATION
  Report Type: 
  Country: None (occurrence: None)
  Receive Date: 20051005
  Receipt Date: 20051005
  Transmission Date: 20060501
  Serious: Yes (Hospitalization)
  Sender: FDA-Public Use
  Company Number: None

PATIENT
  Age: 65 Year
  Sex: Female
  Weight: 256 kg

DRUGS (4)
  1. EPTIFIBATIDE [Suspect]
     Indication: ACUTE MYOCARDIAL INFARCTION
     Dosage: 180 MCG/KG BOLUS   2MCG/KG/MIN
     Route: 040
     Dates: start: 20050324
  2. ASPIRIN [Concomitant]
  3. HEPARIN [Concomitant]
  4. PLAVIX [Concomitant]

REACTIONS (2)
  - CATHETER SITE HAEMATOMA [None]
  - POST PROCEDURAL COMPLICATION [None]
